FAERS Safety Report 9440022 (Version 1)
Quarter: 2013Q3

REPORT INFORMATION
  Report Type: Spontaneous
  Country: US (occurrence: US)
  Receive Date: 20130805
  Receipt Date: 20130805
  Transmission Date: 20140515
  Serious: No
  Sender: FDA-Public Use
  Company Number: US-MYLANLABS-2013S1014388

PATIENT
  Age: 36 Year
  Sex: Female

DRUGS (3)
  1. MODAFINIL TABLETS USP [Suspect]
     Route: 048
     Dates: start: 20130529
  2. IMIPRAMINE [Concomitant]
     Route: 048
  3. LOESTRIN [Concomitant]
     Route: 048

REACTIONS (1)
  - Drug ineffective [Not Recovered/Not Resolved]
